FAERS Safety Report 21975952 (Version 1)
Quarter: 2023Q1

REPORT INFORMATION
  Report Type: 
  Country: None (occurrence: None)
  Receive Date: 20230210
  Receipt Date: 20230210
  Transmission Date: 20230418
  Serious: No
  Sender: FDA-Public Use
  Company Number: NL-ROCHE-3220524

PATIENT
  Weight: 68 kg

DRUGS (37)
  1. INVESTIGATIONAL PRODUCT [Suspect]
     Active Substance: INVESTIGATIONAL PRODUCT
     Dosage: START DATE OF MOST RECENT DOSE 6 MG OF STUDY DRUG PRIOR TO AE/SAE: 14-NOV-2022?START DATE OF MOST RE
     Dates: start: 20221110
  2. ATEZOLIZUMAB [Suspect]
     Active Substance: ATEZOLIZUMAB
     Dosage: START DATE OF MOST RECENT DOSE 1200 MG OF STUDY DRUG PRIOR TO AE/SAE: 10/NOV/2022?START DATE OF MOST
     Dates: start: 20221110
  3. FLUTICASONE PROPIONATE [Concomitant]
     Active Substance: FLUTICASONE PROPIONATE
     Dates: start: 20210921, end: 20221110
  4. CALCIUM CARBONATE [Concomitant]
     Active Substance: CALCIUM CARBONATE
     Dates: start: 20210607
  5. LATANOPROST [Concomitant]
     Active Substance: LATANOPROST
     Dates: start: 20211019
  6. POLYETHYLENE GLYCOLS [Concomitant]
     Active Substance: POLYETHYLENE GLYCOLS
     Dosage: 1 SACHET
     Dates: start: 20211211, end: 20221110
  7. OLMESARTAN [Concomitant]
     Active Substance: OLMESARTAN
     Dates: start: 20211019, end: 20221202
  8. AMLODIPINE [Concomitant]
     Active Substance: AMLODIPINE BESYLATE
     Dates: start: 20211019, end: 20221202
  9. HYDROCHLOROTHIAZIDE [Concomitant]
     Active Substance: HYDROCHLOROTHIAZIDE
     Dates: start: 20211019, end: 20221202
  10. PANTOPRAZOLE [Concomitant]
     Active Substance: PANTOPRAZOLE
     Dates: start: 20210531
  11. PANTOPRAZOLE [Concomitant]
     Active Substance: PANTOPRAZOLE
     Dates: start: 20221110, end: 20221202
  12. ZINC OXIDE [Concomitant]
     Active Substance: ZINC OXIDE
     Dates: start: 20221101
  13. PREGABALIN [Concomitant]
     Active Substance: PREGABALIN
     Dates: start: 20221028, end: 20221110
  14. PREGABALIN [Concomitant]
     Active Substance: PREGABALIN
     Dates: start: 20221110, end: 20221114
  15. PREGABALIN [Concomitant]
     Active Substance: PREGABALIN
     Dates: start: 20221114, end: 20221118
  16. PREGABALIN [Concomitant]
     Active Substance: PREGABALIN
     Dates: start: 20221118, end: 20221219
  17. ACETAMINOPHEN [Concomitant]
     Active Substance: ACETAMINOPHEN
     Dates: start: 20221110, end: 20221110
  18. ACETAMINOPHEN [Concomitant]
     Active Substance: ACETAMINOPHEN
     Dates: start: 20221114, end: 20221114
  19. ACETAMINOPHEN [Concomitant]
     Active Substance: ACETAMINOPHEN
     Dates: start: 20221110, end: 20221113
  20. ACETAMINOPHEN [Concomitant]
     Active Substance: ACETAMINOPHEN
     Dates: start: 20221201, end: 20221201
  21. ACETAMINOPHEN [Concomitant]
     Active Substance: ACETAMINOPHEN
     Dates: start: 20221223, end: 20221223
  22. METOCLOPRAMIDE [Concomitant]
     Active Substance: METOCLOPRAMIDE
     Dates: start: 20221111, end: 20221113
  23. METOCLOPRAMIDE [Concomitant]
     Active Substance: METOCLOPRAMIDE
     Dates: start: 20221114, end: 20221114
  24. METOCLOPRAMIDE [Concomitant]
     Active Substance: METOCLOPRAMIDE
     Dates: start: 20221028, end: 20221110
  25. COSMETICS [Concomitant]
     Active Substance: COSMETICS
     Dates: start: 20221201
  26. COSMETICS [Concomitant]
     Active Substance: COSMETICS
     Dates: start: 20221115, end: 20221201
  27. CETIRIZINE HYDROCHLORIDE [Concomitant]
     Active Substance: CETIRIZINE HYDROCHLORIDE
     Dates: start: 20221114, end: 20221114
  28. CETIRIZINE HYDROCHLORIDE [Concomitant]
     Active Substance: CETIRIZINE HYDROCHLORIDE
     Dates: start: 20221201, end: 20221201
  29. CETIRIZINE HYDROCHLORIDE [Concomitant]
     Active Substance: CETIRIZINE HYDROCHLORIDE
     Dates: start: 20221223, end: 20221223
  30. CELECOXIB [Concomitant]
     Active Substance: CELECOXIB
     Dates: start: 20221114, end: 20221116
  31. CELECOXIB [Concomitant]
     Active Substance: CELECOXIB
     Dates: start: 20221116, end: 20221202
  32. CELECOXIB [Concomitant]
     Active Substance: CELECOXIB
     Dates: start: 20221205, end: 20221205
  33. CELECOXIB [Concomitant]
     Active Substance: CELECOXIB
     Dates: start: 20221223, end: 20221223
  34. CHOLECALCIFEROL [Concomitant]
     Active Substance: CHOLECALCIFEROL
     Dates: start: 20210607
  35. FENTANYL [Concomitant]
     Active Substance: FENTANYL
     Dates: start: 20221114, end: 20221114
  36. VALACYCLOVIR HYDROCHLORIDE [Concomitant]
     Active Substance: VALACYCLOVIR HYDROCHLORIDE
     Dates: start: 20221125, end: 20221202
  37. HYDROCORTISONE [Concomitant]
     Active Substance: HYDROCORTISONE
     Dates: start: 20221205, end: 20221206

REACTIONS (2)
  - Cytokine release syndrome [None]
  - Cytokine release syndrome [None]

NARRATIVE: CASE EVENT DATE: 20221110
